FAERS Safety Report 7761079-2 (Version None)
Quarter: 2011Q3

REPORT INFORMATION
  Report Type: 
  Country: None (occurrence: None)
  Receive Date: 20110920
  Receipt Date: 20110909
  Transmission Date: 20111222
  Serious: Yes (Other)
  Sender: FDA-Public Use
  Company Number: US-BAYER-2010-003059

PATIENT
  Age: 42 Year
  Sex: Female
  Weight: 71.655 kg

DRUGS (7)
  1. YASMIN [Suspect]
     Indication: ACNE
  2. CITALOPRAM HYDROBROMIDE [Concomitant]
     Indication: ACNE
  3. IBUPROFEN [Concomitant]
  4. NAPROXEN (ALEVE) [Concomitant]
  5. YAZ [Suspect]
     Indication: ACNE
  6. ADVIL LIQUI-GELS [Concomitant]
  7. MOTRIN [Concomitant]

REACTIONS (5)
  - PAIN [None]
  - INJURY [None]
  - EMOTIONAL DISTRESS [None]
  - PORTAL VEIN THROMBOSIS [None]
  - DEEP VEIN THROMBOSIS [None]
